FAERS Safety Report 9929214 (Version 2)
Quarter: 2014Q1

REPORT INFORMATION
  Report Type: Spontaneous
  Country: US (occurrence: None)
  Receive Date: 20140225
  Receipt Date: 20140313
  Transmission Date: 20141002
  Serious: Yes (Other)
  Sender: FDA-Public Use
  Company Number: 2014P1001490

PATIENT
  Age: 61 Year
  Sex: Female
  Weight: 90.72 kg

DRUGS (6)
  1. METHYLPREDNISOLONE [Suspect]
     Indication: BACK PAIN
     Route: 048
     Dates: start: 20140106, end: 201401
  2. METHYLPREDNISOLONE [Suspect]
     Indication: MUSCLE SPASMS
     Route: 048
     Dates: start: 20140106, end: 201401
  3. METHYLPREDNISOLONE [Suspect]
     Indication: MUSCLE SPASMS
     Route: 048
     Dates: start: 20140106, end: 201401
  4. ASPIRIN [Concomitant]
  5. CVS MULTIVITAMIN [Concomitant]
  6. MELOXICAM [Concomitant]

REACTIONS (3)
  - Visual impairment [None]
  - Vision blurred [None]
  - Retinal oedema [None]
